FAERS Safety Report 5542359-8 (Version None)
Quarter: 2007Q4

REPORT INFORMATION
  Report Type: 
  Country: None (occurrence: None)
  Receive Date: 20071129
  Receipt Date: 20070618
  Transmission Date: 20080405
  Serious: Yes (Hospitalization)
  Sender: FDA-Public Use
  Company Number: US200705002548

PATIENT
  Age: 19 Year
  Sex: Female
  Weight: 49.9 kg

DRUGS (3)
  1. ZYPREXA [Suspect]
     Indication: BIPOLAR DISORDER
     Dosage: 15 MG, DAILY (1/D), ORAL; 20 MG, DAILY (1/D), ORAL
     Route: 048
     Dates: start: 20070322, end: 20070515
  2. ZYPREXA [Suspect]
     Indication: BIPOLAR DISORDER
     Dosage: 15 MG, DAILY (1/D), ORAL; 20 MG, DAILY (1/D), ORAL
     Route: 048
     Dates: start: 20070601
  3. KLONOPIN [Concomitant]

REACTIONS (2)
  - CHOLELITHIASIS [None]
  - PANCREATITIS ACUTE [None]
